FAERS Safety Report 6377023-9 (Version None)
Quarter: 2009Q3

REPORT INFORMATION
  Report Type: 
  Country: None (occurrence: None)
  Receive Date: 20090925
  Receipt Date: 20090916
  Transmission Date: 20100115
  Serious: Yes (Hospitalization, Other)
  Sender: FDA-Public Use
  Company Number: US-JNJFOC-20090902187

PATIENT
  Sex: Female
  Weight: 60.3 kg

DRUGS (25)
  1. DOXORUBICIN HCL [Suspect]
     Indication: BURKITT'S LYMPHOMA
     Dosage: 66 MG
     Route: 042
     Dates: start: 20090815
  2. RITUXAN [Suspect]
     Dosage: 825 MG
     Route: 042
  3. RITUXAN [Suspect]
     Indication: BURKITT'S LYMPHOMA
     Dosage: 825 MG
     Route: 042
  4. CYCLOPHOSPHAMIDE [Suspect]
     Route: 065
  5. CYCLOPHOSPHAMIDE [Suspect]
     Indication: BURKITT'S LYMPHOMA
     Dosage: 1320MG
     Route: 065
  6. VINCRISTINE [Suspect]
     Indication: BURKITT'S LYMPHOMA
     Dosage: 2MG
     Route: 042
  7. CYTARABINE [Suspect]
     Indication: BURKITT'S LYMPHOMA
     Route: 037
  8. METHOTREXATE [Suspect]
     Route: 042
  9. METHOTREXATE [Suspect]
     Indication: BURKITT'S LYMPHOMA
     Dosage: 500 MG
     Route: 042
  10. LISINOPRIL [Concomitant]
     Route: 065
  11. ACYCLOVIR [Concomitant]
     Route: 065
  12. ALLOPURINOL [Concomitant]
     Route: 065
  13. FLUCONAZOLE [Concomitant]
     Route: 065
  14. DAPSONE [Concomitant]
     Route: 065
  15. COLACE [Concomitant]
     Route: 065
  16. COLACE [Concomitant]
     Route: 065
  17. BENADRYL [Concomitant]
     Indication: SLEEP DISORDER
     Dosage: 25-50MG
     Route: 065
  18. NYSTATIN [Concomitant]
     Dosage: 500,000 SWISH AND SWALLOW
     Route: 065
  19. SODIUM BICARBONATE IN PLASTIC CONTAINER [Concomitant]
     Route: 048
  20. TAZOBACTAM [Concomitant]
     Route: 065
  21. DEXTROSE [Concomitant]
     Route: 065
  22. VANCOMYCIN [Concomitant]
     Route: 065
  23. SODIUM CHLORIDE [Concomitant]
     Route: 042
  24. ACETAMINOPHEN [Concomitant]
     Indication: PYREXIA
     Route: 048
  25. PIPERACILLIN [Concomitant]
     Route: 065

REACTIONS (8)
  - ASPARTATE AMINOTRANSFERASE INCREASED [None]
  - CANDIDIASIS [None]
  - FEBRILE NEUTROPENIA [None]
  - HYPOCALCAEMIA [None]
  - LYMPHOCYTE COUNT [None]
  - NEUTROPHIL COUNT [None]
  - ORAL INFECTION [None]
  - STOMATITIS [None]
